FAERS Safety Report 18390986 (Version 5)
Quarter: 2022Q1

REPORT INFORMATION
  Report Type: Other
  Country: BE (occurrence: None)
  Receive Date: 20201015
  Receipt Date: 20220216
  Transmission Date: 20220423
  Serious: No
  Sender: FDA-Public Use
  Company Number: BE-ROCHE-2695633

PATIENT
  Age: 35 Year
  Sex: Female
  Weight: 74 kg

DRUGS (17)
  1. OCRELIZUMAB [Suspect]
     Active Substance: OCRELIZUMAB
     Indication: Progressive relapsing multiple sclerosis
     Dosage: 300 MG/250 ML (TOTAL VOLUME ADMINISTERED: 260 ML)
     Route: 042
     Dates: start: 20200818, end: 20200818
  2. OCRELIZUMAB [Suspect]
     Active Substance: OCRELIZUMAB
     Indication: Progressive relapsing multiple sclerosis
     Dosage: 300 MG/250 ML (TOTAL VOLUME ADMINISTERED: 260 ML)
     Route: 042
     Dates: start: 20200901, end: 20200901
  3. OCRELIZUMAB [Suspect]
     Active Substance: OCRELIZUMAB
     Dosage: 300 MG/250 ML (TOTAL VOLUME ADMINISTERED: 260ML)
     Route: 042
     Dates: start: 20210216, end: 20210216
  4. DULOXETINE [Concomitant]
     Active Substance: DULOXETINE
     Indication: Multiple sclerosis
     Route: 048
     Dates: start: 20180309, end: 20210119
  5. AMANTADINE [Concomitant]
     Active Substance: AMANTADINE
     Route: 048
     Dates: start: 20200103, end: 202101
  6. SOLU-MEDROL [Concomitant]
     Active Substance: METHYLPREDNISOLONE SODIUM SUCCINATE
     Route: 042
     Dates: start: 20200818, end: 20200818
  7. SOLU-MEDROL [Concomitant]
     Active Substance: METHYLPREDNISOLONE SODIUM SUCCINATE
     Route: 042
     Dates: start: 20200901, end: 20200901
  8. SOLU-MEDROL [Concomitant]
     Active Substance: METHYLPREDNISOLONE SODIUM SUCCINATE
     Route: 042
     Dates: start: 20210216, end: 20210216
  9. LEVOCETIRIZINE [Concomitant]
     Active Substance: LEVOCETIRIZINE
     Route: 048
     Dates: start: 20200818, end: 20200818
  10. LEVOCETIRIZINE [Concomitant]
     Active Substance: LEVOCETIRIZINE
     Route: 048
     Dates: start: 20200901, end: 20200901
  11. LEVOCETIRIZINE [Concomitant]
     Active Substance: LEVOCETIRIZINE
     Route: 048
     Dates: start: 20210216, end: 20210216
  12. ACETAMINOPHEN [Concomitant]
     Active Substance: ACETAMINOPHEN
     Route: 042
     Dates: start: 20200818, end: 20200818
  13. ACETAMINOPHEN [Concomitant]
     Active Substance: ACETAMINOPHEN
     Route: 042
     Dates: start: 20200901, end: 20200901
  14. ACETAMINOPHEN [Concomitant]
     Active Substance: ACETAMINOPHEN
     Route: 042
     Dates: start: 20210216, end: 20210216
  15. LEVOCETIRIZINE [Concomitant]
     Active Substance: LEVOCETIRIZINE
     Dosage: ONCE BEFORE INFUSION
     Route: 048
     Dates: start: 20200818, end: 20200818
  16. LEVOCETIRIZINE [Concomitant]
     Active Substance: LEVOCETIRIZINE
     Dosage: ONCE BEFORE INFUSION
     Route: 048
     Dates: start: 20200901, end: 20200901
  17. METHYLPHENIDATE HYDROCHLORIDE [Concomitant]
     Active Substance: METHYLPHENIDATE HYDROCHLORIDE
     Route: 048
     Dates: start: 20200103

REACTIONS (4)
  - Oral herpes [Recovered/Resolved]
  - Musculoskeletal pain [Recovered/Resolved]
  - Pruritus [Recovered/Resolved]
  - Alopecia [Recovered/Resolved]

NARRATIVE: CASE EVENT DATE: 20200901
